FAERS Safety Report 16543910 (Version 1)
Quarter: 2019Q3

REPORT INFORMATION
  Report Type: Spontaneous
  Country: IT (occurrence: IT)
  Receive Date: 20190709
  Receipt Date: 20190709
  Transmission Date: 20191004
  Serious: Yes (Hospitalization, Other)
  Sender: FDA-Public Use
  Company Number: IT-DRREDDYS-GER/ITL/19/0111290

PATIENT
  Age: 56 Year
  Sex: Male

DRUGS (6)
  1. CISPLATIN. [Suspect]
     Active Substance: CISPLATIN
     Indication: NON-SMALL CELL LUNG CANCER METASTATIC
  2. B-VITAMIN KOMPLEX [Suspect]
     Active Substance: VITAMINS
     Indication: PRODUCT USED FOR UNKNOWN INDICATION
  3. PANTOPRAZOLE [Suspect]
     Active Substance: PANTOPRAZOLE
     Indication: NON-SMALL CELL LUNG CANCER METASTATIC
     Dosage: 20 MILLIGRAM, QD
     Route: 065
  4. PEMETREXED. [Suspect]
     Active Substance: PEMETREXED
     Indication: NON-SMALL CELL LUNG CANCER METASTATIC
  5. LEVETIRACETAM. [Suspect]
     Active Substance: LEVETIRACETAM
     Indication: NON-SMALL CELL LUNG CANCER METASTATIC
     Dosage: 250 MILLIGRAM, BID
  6. METHYLPREDNISOLONE. [Suspect]
     Active Substance: METHYLPREDNISOLONE
     Indication: NON-SMALL CELL LUNG CANCER METASTATIC
     Dosage: 16 MILLIGRAM, QD

REACTIONS (9)
  - Pyrexia [Unknown]
  - Chordae tendinae rupture [Unknown]
  - Hypergammaglobulinaemia [Unknown]
  - Visceral leishmaniasis [Recovered/Resolved]
  - C-reactive protein increased [Recovered/Resolved]
  - Pancytopenia [Recovered/Resolved]
  - Hypoalbuminaemia [Unknown]
  - Cardiac murmur [Unknown]
  - Procalcitonin increased [Unknown]
